FAERS Safety Report 4566675-1 (Version None)
Quarter: 2005Q1

REPORT INFORMATION
  Report Type: 
  Country: None (occurrence: None)
  Receive Date: 20050201
  Receipt Date: 20050121
  Transmission Date: 20050727
  Serious: Yes (Hospitalization, Disabling)
  Sender: FDA-Public Use
  Company Number: CH-MERCK-0501CHE00023

PATIENT
  Age: 74 Year
  Sex: Female

DRUGS (5)
  1. VIOXX [Suspect]
     Indication: OSTEOARTHRITIS
     Route: 048
     Dates: start: 20020301, end: 20030110
  2. AMLODIPINE BESYLATE [Concomitant]
     Route: 048
  3. PHENPROCOUMON [Concomitant]
     Route: 048
  4. SOTALOL HYDROCHLORIDE [Concomitant]
     Route: 048
  5. LORAZEPAM [Concomitant]
     Route: 048

REACTIONS (4)
  - CEREBRAL INFARCTION [None]
  - HEMIPLEGIA [None]
  - PSYCHOMOTOR AGITATION [None]
  - RESPIRATORY DISORDER [None]
